FAERS Safety Report 18724710 (Version 2)
Quarter: 2021Q1

REPORT INFORMATION
  Report Type: Report from Study
  Country: US (occurrence: US)
  Receive Date: 20210111
  Receipt Date: 20210209
  Transmission Date: 20210419
  Serious: Yes (Hospitalization, Other)
  Sender: FDA-Public Use
  Company Number: US-JNJFOC-20210109653

PATIENT
  Age: 56 Year
  Sex: Female
  Weight: 123 kg

DRUGS (5)
  1. ESKETAMINE [Suspect]
     Active Substance: ESKETAMINE
     Indication: DEPRESSION
     Dates: start: 20171113, end: 20171207
  2. ESKETAMINE [Suspect]
     Active Substance: ESKETAMINE
     Dosage: MEDICAL KIT NUMBER: 708227
     Dates: start: 20190718, end: 20201221
  3. ESKETAMINE [Suspect]
     Active Substance: ESKETAMINE
     Dates: start: 20190401
  4. ESKETAMINE [Suspect]
     Active Substance: ESKETAMINE
     Dates: start: 20171211, end: 20190331
  5. ESKETAMINE [Suspect]
     Active Substance: ESKETAMINE
     Dates: start: 20190507

REACTIONS (1)
  - Breast cancer [Recovering/Resolving]

NARRATIVE: CASE EVENT DATE: 20210104
